FAERS Safety Report 7791303-1 (Version None)
Quarter: 2011Q4

REPORT INFORMATION
  Report Type: 
  Country: None (occurrence: None)
  Receive Date: 20111003
  Receipt Date: 20090827
  Transmission Date: 20120403
  Serious: Yes (Other)
  Sender: FDA-Public Use
  Company Number: DE-RANBAXY-2009US-46046

PATIENT

DRUGS (4)
  1. PANTOPRAZOLE [Suspect]
     Indication: GASTRITIS
     Dosage: 20 MG, UNK
     Route: 048
     Dates: start: 20090701, end: 20090728
  2. TRIOBE [Concomitant]
     Indication: HYPOVITAMINOSIS
     Dosage: UNK UNK,
     Route: 048
     Dates: start: 20090807
  3. RANITIDINE [Suspect]
     Indication: GASTRITIS
     Dosage: 150 MG, BID
     Route: 048
     Dates: start: 20090701, end: 20090728
  4. CENTYL [Concomitant]
     Indication: HYPERTENSION
     Dosage: 5 MG, QD
     Route: 048

REACTIONS (5)
  - FATIGUE [None]
  - HALLUCINATION, VISUAL [None]
  - VISION BLURRED [None]
  - LISTLESS [None]
  - CONFUSIONAL STATE [None]
